FAERS Safety Report 5310596-3 (Version None)
Quarter: 2007Q1

REPORT INFORMATION
  Report Type: 
  Country: None (occurrence: None)
  Receive Date: 20070201
  Receipt Date: 20061116
  Transmission Date: 20070707
  Serious: No
  Sender: FDA-Public Use
  Company Number: 258651

PATIENT
  Age: 79 Year
  Sex: Male
  Weight: 79.4 kg

DRUGS (3)
  1. LEVEMIR [Suspect]
     Indication: DIABETES MELLITUS INSULIN-DEPENDENT
     Dosage: 10 IU, BID, SUBCUTANEOUS
     Route: 058
     Dates: start: 20050201
  2. GLYBURIDE [Concomitant]
  3. NOVOFINE R 31 (NEEDLE) [Concomitant]

REACTIONS (1)
  - BLOOD GLUCOSE INCREASED [None]
